FAERS Safety Report 6196916-9 (Version None)
Quarter: 2009Q2

REPORT INFORMATION
  Report Type: 
  Country: None (occurrence: None)
  Receive Date: 20090518
  Receipt Date: 20090518
  Transmission Date: 20091009
  Serious: Yes (Other)
  Sender: FDA-Public Use
  Company Number: None

PATIENT
  Sex: Male
  Weight: 75 kg

DRUGS (1)
  1. RISPERIDONE [Suspect]
     Indication: TOURETTE'S DISORDER
     Dosage: 2 MG TID PO
     Route: 048
     Dates: start: 20080901, end: 20081101

REACTIONS (3)
  - CONDITION AGGRAVATED [None]
  - PRODUCT SUBSTITUTION ISSUE [None]
  - TOURETTE'S DISORDER [None]
